FAERS Safety Report 17520082 (Version 1)
Quarter: 2020Q1

REPORT INFORMATION
  Report Type: Spontaneous
  Country: US (occurrence: US)
  Receive Date: 20200310
  Receipt Date: 20200310
  Transmission Date: 20200409
  Serious: Yes (Disabling)
  Sender: FDA-Public Use
  Company Number: None

PATIENT
  Age: 78 Year
  Sex: Male
  Weight: 93.6 kg

DRUGS (5)
  1. SIMVASTATIN. [Concomitant]
     Active Substance: SIMVASTATIN
  2. SENIOR MULTIVITAMIN [Concomitant]
  3. ASPIRIN. [Concomitant]
     Active Substance: ASPIRIN
  4. NIACIN. [Concomitant]
     Active Substance: NIACIN
  5. FINASTERIDE. [Suspect]
     Active Substance: FINASTERIDE
     Indication: BENIGN PROSTATIC HYPERPLASIA
     Dosage: ?          QUANTITY:1 TABLET(S);?
     Route: 048
     Dates: start: 20181101, end: 20190323

REACTIONS (8)
  - Indifference [None]
  - Laziness [None]
  - Depression [None]
  - Panic attack [None]
  - Apathy [None]
  - Memory impairment [None]
  - Judgement impaired [None]
  - Muscular weakness [None]

NARRATIVE: CASE EVENT DATE: 20181212
